FAERS Safety Report 12764174 (Version 7)
Quarter: 2017Q2

REPORT INFORMATION
  Report Type: Report from Study
  Country: US (occurrence: US)
  Receive Date: 20160920
  Receipt Date: 20170412
  Transmission Date: 20170830
  Serious: Yes (Death, Hospitalization, Other)
  Sender: FDA-Public Use
  Company Number: US-ACTELION-A-US2016-142333

PATIENT
  Age: 80 Year
  Sex: Female

DRUGS (23)
  1. LEVOFLOXACIN. [Concomitant]
     Active Substance: LEVOFLOXACIN
     Dosage: 500 MG, UNK
     Dates: start: 20161111
  2. LOPERAMIDE [Concomitant]
     Active Substance: LOPERAMIDE
  3. CENTRUM [Concomitant]
     Active Substance: VITAMINS
  4. OPSUMIT [Suspect]
     Active Substance: MACITENTAN
     Indication: PULMONARY ARTERIAL HYPERTENSION
     Dosage: 10 MG, QD
     Route: 048
     Dates: start: 20150928
  5. TRAMADOL. [Concomitant]
     Active Substance: TRAMADOL
     Dosage: 50 MG, Q6HRS
  6. LEUCOVORIN. [Concomitant]
     Active Substance: LEUCOVORIN
  7. FUROSEMIDE. [Concomitant]
     Active Substance: FUROSEMIDE
     Dosage: 40 MG, QD
     Dates: start: 20161111
  8. POTASSIUM CHLORIDE. [Concomitant]
     Active Substance: POTASSIUM CHLORIDE
     Dosage: 20 MEQ, BID
     Dates: start: 20161117
  9. AUGMENTIN [Concomitant]
     Active Substance: AMOXICILLIN\CLAVULANATE POTASSIUM
     Dosage: 875 MG, UNK
     Dates: start: 20161114
  10. RANITIDINE. [Concomitant]
     Active Substance: RANITIDINE
  11. FOLIC ACID. [Concomitant]
     Active Substance: FOLIC ACID
  12. METOPROLOL. [Concomitant]
     Active Substance: METOPROLOL
  13. AMIODARONE [Concomitant]
     Active Substance: AMIODARONE
     Dosage: 200 MG, UNK
  14. ZANTAC [Concomitant]
     Active Substance: RANITIDINE HYDROCHLORIDE
     Dosage: 300 MG, UNK
  15. ZOVIRAX [Concomitant]
     Active Substance: ACYCLOVIR
  16. ACYCLOVIR. [Concomitant]
     Active Substance: ACYCLOVIR
  17. LASIX [Concomitant]
     Active Substance: FUROSEMIDE
     Dosage: 40 MG, UNK
  18. CIPRO [Concomitant]
     Active Substance: CIPROFLOXACIN HYDROCHLORIDE
  19. DEXAMETHASONE. [Concomitant]
     Active Substance: DEXAMETHASONE
  20. TOPROL XL [Concomitant]
     Active Substance: METOPROLOL SUCCINATE
  21. LEVAQUIN [Concomitant]
     Active Substance: LEVOFLOXACIN
  22. FLUCONAZOLE. [Concomitant]
     Active Substance: FLUCONAZOLE
  23. AMOX [Concomitant]
     Active Substance: UNSPECIFIED INGREDIENT

REACTIONS (6)
  - Drug dose omission [Unknown]
  - Central nervous system lymphoma [Fatal]
  - Non-Hodgkin^s lymphoma [Not Recovered/Not Resolved]
  - Stem cell transplant [Recovered/Resolved]
  - Pneumonia [Recovering/Resolving]
  - Fatigue [Not Recovered/Not Resolved]

NARRATIVE: CASE EVENT DATE: 20160901
